FAERS Safety Report 18087847 (Version 1)
Quarter: 2020Q3

REPORT INFORMATION
  Report Type: Spontaneous
  Country: US (occurrence: US)
  Receive Date: 20200729
  Receipt Date: 20200729
  Transmission Date: 20201103
  Serious: Yes (Death, Other)
  Sender: FDA-Public Use
  Company Number: US-009507513-2007USA010943

PATIENT
  Sex: Male

DRUGS (2)
  1. TEMODAR [Suspect]
     Active Substance: TEMOZOLOMIDE
     Indication: BRAIN NEOPLASM MALIGNANT
     Dosage: 350 MILLIGRAM, QD (TAKE 1 CAPSULE BY MOUTH WITH 100 CAPSULE FOR A TOTAL DOSE OF 350 MG DAILY FOR 5 D
     Route: 048
  2. TEMODAR [Suspect]
     Active Substance: TEMOZOLOMIDE
     Indication: PULMONARY EMBOLISM
     Dosage: 350 MILLIGRAM, QD (TAKE 1 CAPSULE BY MOUTH WITH 100 CAPSULE FOR A TOTAL DOSE OF 350 MG DAILY FOR 5 D
     Route: 048

REACTIONS (1)
  - Death [Fatal]
